FAERS Safety Report 7545866-1 (Version None)
Quarter: 2011Q2

REPORT INFORMATION
  Report Type: 
  Country: None (occurrence: None)
  Receive Date: 20110614
  Receipt Date: 20110605
  Transmission Date: 20111010
  Serious: Yes (Other)
  Sender: FDA-Public Use
  Company Number: US-AMGEN-USASP2011029110

PATIENT
  Sex: Female

DRUGS (1)
  1. ENBREL [Suspect]
     Indication: PSORIATIC ARTHROPATHY
     Dosage: UNK
     Dates: start: 20050104, end: 20070101

REACTIONS (2)
  - THERAPEUTIC RESPONSE DECREASED [None]
  - IDIOPATHIC THROMBOCYTOPENIC PURPURA [None]
